FAERS Safety Report 20992626 (Version 1)
Quarter: 2022Q2

REPORT INFORMATION
  Report Type: Spontaneous
  Country: SE (occurrence: SE)
  Receive Date: 20220622
  Receipt Date: 20220622
  Transmission Date: 20220721
  Serious: Yes (Hospitalization, Disabling)
  Sender: FDA-Public Use
  Company Number: None

PATIENT
  Age: 45 Year
  Sex: Female
  Weight: 68 kg

DRUGS (1)
  1. ROPIVACAINE [Suspect]
     Active Substance: ROPIVACAINE
     Indication: Toothache
     Dosage: STRENGTH: 7.5 MG / ML ?DOSE: 3.5 ML?SOLUTION FOR INJECTION
     Dates: start: 20210415, end: 20210415

REACTIONS (3)
  - Pyrexia [Recovered/Resolved]
  - Lymphadenitis [Recovering/Resolving]
  - Histiocytic necrotising lymphadenitis [Recovering/Resolving]

NARRATIVE: CASE EVENT DATE: 20210416
